FAERS Safety Report 6736110-3 (Version None)
Quarter: 2010Q2

REPORT INFORMATION
  Report Type: 
  Country: None (occurrence: None)
  Receive Date: 20100521
  Receipt Date: 20100225
  Transmission Date: 20101027
  Serious: Yes (Other)
  Sender: FDA-Public Use
  Company Number: US-SANOFI-AVENTIS-2010SA010912

PATIENT
  Age: 80 Year
  Sex: Female
  Weight: 87.27 kg

DRUGS (17)
  1. MULTAQ [Suspect]
     Indication: ATRIAL FIBRILLATION
     Route: 048
     Dates: start: 20100128, end: 20100217
  2. CARDIZEM [Concomitant]
     Dates: end: 20100101
  3. CARDIZEM [Concomitant]
     Dates: start: 20100101, end: 20100201
  4. CARDIZEM [Concomitant]
     Dates: start: 20100201
  5. COUMADIN [Concomitant]
  6. MULTIVITAMIN [Concomitant]
  7. FEMARA [Concomitant]
  8. PRAVASTATIN [Concomitant]
  9. SIMVASTATIN [Concomitant]
     Dates: end: 20100101
  10. LASIX [Concomitant]
     Dates: end: 20100201
  11. LASIX [Concomitant]
     Dates: start: 20100201
  12. TOPROL-XL [Concomitant]
     Dates: end: 20100101
  13. TOPROL-XL [Concomitant]
     Dates: start: 20100101, end: 20100201
  14. TOPROL-XL [Concomitant]
     Dates: start: 20100201
  15. CALCIUM [Concomitant]
  16. VITAMIN D [Concomitant]
  17. ASPIRIN [Concomitant]

REACTIONS (10)
  - CARDIAC FAILURE CONGESTIVE [None]
  - COUGH [None]
  - DIARRHOEA [None]
  - DIZZINESS [None]
  - DYSPNOEA [None]
  - FATIGUE [None]
  - PALPITATIONS [None]
  - SWELLING [None]
  - WEIGHT INCREASED [None]
  - WHEEZING [None]
